FAERS Safety Report 14328210 (Version 4)
Quarter: 2019Q2

REPORT INFORMATION
  Report Type: Spontaneous
  Country: US (occurrence: US)
  Receive Date: 20171227
  Receipt Date: 20190401
  Transmission Date: 20190711
  Serious: Yes (Hospitalization)
  Sender: FDA-Public Use
  Company Number: US-VANDA PHARMACEUTICALS, INC-2017TASUS001950

PATIENT
  Age: 32 Year
  Sex: Female

DRUGS (1)
  1. HETLIOZ [Suspect]
     Active Substance: TASIMELTEON
     Indication: NON-24-HOUR SLEEP-WAKE DISORDER
     Dosage: 20 MG, EVERY NIGHT AT BEDTIME
     Route: 048
     Dates: start: 20171116, end: 20171117

REACTIONS (3)
  - Kidney infection [Unknown]
  - Abscess limb [Unknown]
  - Headache [Recovering/Resolving]
